FAERS Safety Report 9207825 (Version 1)
Quarter: 2013Q2

REPORT INFORMATION
  Report Type: Spontaneous
  Country: US (occurrence: US)
  Receive Date: 20130403
  Receipt Date: 20130403
  Transmission Date: 20140414
  Serious: Yes (Hospitalization)
  Sender: FDA-Public Use
  Company Number: US-CELGENEUS-163-21880-13034181

PATIENT
  Sex: Male
  Weight: 67.4 kg

DRUGS (8)
  1. REVLIMID [Suspect]
     Indication: PLASMA CELL MYELOMA
     Dosage: 15 MILLIGRAM
     Route: 048
     Dates: start: 20120814, end: 20120822
  2. THALOMID [Concomitant]
     Indication: PLASMA CELL MYELOMA
     Dosage: 100 MILLIGRAM
     Route: 048
     Dates: start: 201110
  3. THALOMID [Concomitant]
     Dosage: 50 MILLIGRAM
     Route: 048
     Dates: start: 201111
  4. THALOMID [Concomitant]
     Dosage: 50 MILLIGRAM
     Route: 048
     Dates: start: 201301
  5. VELCADE [Concomitant]
     Indication: PLASMA CELL MYELOMA
     Route: 065
  6. PAMIDRONATE [Concomitant]
     Indication: PLASMA CELL MYELOMA
     Route: 065
  7. DEXAMETHASONE [Concomitant]
     Indication: PLASMA CELL MYELOMA
     Route: 065
  8. CYTOXAN [Concomitant]
     Indication: PLASMA CELL MYELOMA
     Route: 065

REACTIONS (4)
  - Hypercalcaemia [Recovered/Resolved]
  - Hypoxia [Recovered/Resolved]
  - Asthenia [Recovered/Resolved]
  - Rash [Recovered/Resolved]
